FAERS Safety Report 13614637 (Version 2)
Quarter: 2017Q2

REPORT INFORMATION
  Report Type: Spontaneous
  Country: AT (occurrence: AT)
  Receive Date: 20170606
  Receipt Date: 20170619
  Transmission Date: 20170830
  Serious: No
  Sender: FDA-Public Use
  Company Number: AT-ASTELLAS-2017US018430

PATIENT
  Age: 51 Year
  Sex: Female
  Weight: 58 kg

DRUGS (28)
  1. ADVAGRAF [Suspect]
     Active Substance: TACROLIMUS
     Route: 048
     Dates: start: 20170412
  2. ADVAGRAF [Suspect]
     Active Substance: TACROLIMUS
     Route: 048
     Dates: start: 20170503
  3. PROGRAF [Suspect]
     Active Substance: TACROLIMUS\TACROLIMUS ANHYDROUS
     Dosage: 10 + 6 MG, UNKNOWN FREQ.
     Route: 065
     Dates: start: 20170416
  4. PROGRAF [Suspect]
     Active Substance: TACROLIMUS\TACROLIMUS ANHYDROUS
     Dosage: 8 + 4 MG, UNKNOWN FREQ.
     Route: 065
     Dates: start: 20170421
  5. PROGRAF [Suspect]
     Active Substance: TACROLIMUS\TACROLIMUS ANHYDROUS
     Dosage: 6 + 6 MG, UNKNOWN FREQ.
     Route: 065
     Dates: start: 20170424
  6. ADVAGRAF [Suspect]
     Active Substance: TACROLIMUS
     Indication: RENAL TRANSPLANT
     Route: 048
     Dates: start: 20170410
  7. PROGRAF [Suspect]
     Active Substance: TACROLIMUS\TACROLIMUS ANHYDROUS
     Dosage: 6 + 4 MG, UNKNOWN FREQ.
     Route: 065
     Dates: start: 20170425
  8. ADVAGRAF [Suspect]
     Active Substance: TACROLIMUS
     Route: 048
     Dates: start: 20170411
  9. PROGRAF [Suspect]
     Active Substance: TACROLIMUS\TACROLIMUS ANHYDROUS
     Dosage: 12 + 12 MG, UNKNOWN FREQ.
     Route: 065
     Dates: start: 20170413
  10. PROGRAF [Suspect]
     Active Substance: TACROLIMUS\TACROLIMUS ANHYDROUS
     Dosage: 10 + 10 MG, UNKNOWN FREQ.
     Route: 065
     Dates: start: 20170415
  11. PROGRAF [Suspect]
     Active Substance: TACROLIMUS\TACROLIMUS ANHYDROUS
     Dosage: 5+ 3 MG, UNKNOWN FREQ.
     Route: 065
     Dates: start: 20170427
  12. PROGRAF [Suspect]
     Active Substance: TACROLIMUS\TACROLIMUS ANHYDROUS
     Dosage: 5+6 MG, UNKNOWN FREQ.
     Route: 065
     Dates: start: 20170504
  13. PROGRAF [Suspect]
     Active Substance: TACROLIMUS\TACROLIMUS ANHYDROUS
     Dosage: 12 + 8 MG, UNKNOWN FREQ.
     Route: 065
     Dates: start: 20170414
  14. PROGRAF [Suspect]
     Active Substance: TACROLIMUS\TACROLIMUS ANHYDROUS
     Dosage: 8 + 6 MG, UNKNOWN FREQ.
     Route: 065
     Dates: start: 20170419
  15. PROGRAF [Suspect]
     Active Substance: TACROLIMUS\TACROLIMUS ANHYDROUS
     Dosage: 7 + 7 MG, UNKNOWN FREQ.
     Route: 065
     Dates: start: 20170420
  16. PROGRAF [Suspect]
     Active Substance: TACROLIMUS\TACROLIMUS ANHYDROUS
     Dosage: 4 + 4 MG, UNKNOWN FREQ.
     Route: 065
     Dates: start: 20170428
  17. ADVAGRAF [Suspect]
     Active Substance: TACROLIMUS
     Route: 048
     Dates: start: 20170502
  18. PROGRAF [Suspect]
     Active Substance: TACROLIMUS\TACROLIMUS ANHYDROUS
     Dosage: 8 + 8 MG, UNKNOWN FREQ.
     Route: 065
     Dates: start: 20170417
  19. PROGRAF [Suspect]
     Active Substance: TACROLIMUS\TACROLIMUS ANHYDROUS
     Dosage: 8 + 8 MG, UNKNOWN FREQ.
     Route: 065
     Dates: start: 20170418
  20. PROGRAF [Suspect]
     Active Substance: TACROLIMUS\TACROLIMUS ANHYDROUS
     Dosage: 6 + 6 MG, UNKNOWN FREQ.
     Route: 065
     Dates: start: 20170423
  21. PROGRAF [Suspect]
     Active Substance: TACROLIMUS\TACROLIMUS ANHYDROUS
     Dosage: 5+ 5 MG, UNKNOWN FREQ.
     Route: 065
     Dates: start: 20170426
  22. PROGRAF [Suspect]
     Active Substance: TACROLIMUS\TACROLIMUS ANHYDROUS
     Dosage: 5 + 4 MG, UNKNOWN FREQ.
     Route: 065
     Dates: start: 20170501
  23. PROGRAF [Suspect]
     Active Substance: TACROLIMUS\TACROLIMUS ANHYDROUS
     Dosage: 0+5 MG, UNKNOWN FREQ.
     Route: 065
     Dates: start: 20170503
  24. PROGRAF [Suspect]
     Active Substance: TACROLIMUS\TACROLIMUS ANHYDROUS
     Dosage: 5+6 MG, UNKNOWN FREQ.
     Route: 065
     Dates: start: 20170511
  25. PROGRAF [Suspect]
     Active Substance: TACROLIMUS\TACROLIMUS ANHYDROUS
     Dosage: 6 + 6 MG, UNKNOWN FREQ.
     Route: 065
     Dates: start: 20170422
  26. PROGRAF [Suspect]
     Active Substance: TACROLIMUS\TACROLIMUS ANHYDROUS
     Dosage: 5+6 MG, UNKNOWN FREQ.
     Route: 065
     Dates: start: 20170508
  27. PROGRAF [Suspect]
     Active Substance: TACROLIMUS\TACROLIMUS ANHYDROUS
     Indication: RENAL TRANSPLANT
     Dosage: 0 + 12 MG, UNKNOWN FREQ.
     Route: 065
     Dates: start: 20170412
  28. PROGRAF [Suspect]
     Active Substance: TACROLIMUS\TACROLIMUS ANHYDROUS
     Dosage: 5+6 MG, UNKNOWN FREQ.
     Route: 065
     Dates: start: 20170515

REACTIONS (2)
  - Immunosuppressant drug level decreased [Recovered/Resolved]
  - Drug ineffective [Unknown]

NARRATIVE: CASE EVENT DATE: 20170411
